FAERS Safety Report 9261558 (Version 1)
Quarter: 2013Q2

REPORT INFORMATION
  Report Type: Report from Study
  Country: US (occurrence: US)
  Receive Date: 20130429
  Receipt Date: 20130429
  Transmission Date: 20140414
  Serious: Yes (Other)
  Sender: FDA-Public Use
  Company Number: US-BAYER-2013-051270

PATIENT
  Age: 32 Year
  Sex: Male

DRUGS (2)
  1. BETASERON [Suspect]
     Indication: MULTIPLE SCLEROSIS
     Dosage: 8 MIU, QOD
     Route: 058
     Dates: start: 20090810, end: 20130320
  2. CYMBALTA [Concomitant]

REACTIONS (3)
  - Decubitus ulcer [Recovering/Resolving]
  - Depression [Recovering/Resolving]
  - Activities of daily living impaired [None]
